FAERS Safety Report 15013133 (Version 1)
Quarter: 2018Q2

REPORT INFORMATION
  Report Type: Spontaneous
  Country: IT (occurrence: IT)
  Receive Date: 20180614
  Receipt Date: 20180614
  Transmission Date: 20180711
  Serious: Yes (Hospitalization, Other)
  Sender: FDA-Public Use
  Company Number: IT-SUNOVION-2018SUN002421

PATIENT
  Age: 17 Year
  Sex: Female

DRUGS (6)
  1. QUETIAPINA TEVA [Concomitant]
     Active Substance: QUETIAPINE
     Dosage: 4 DF, UNK
     Route: 048
  2. TAVOR [Concomitant]
     Dosage: 1 DF, AS NECESSARY
     Route: 065
  3. LATUDA [Suspect]
     Active Substance: LURASIDONE HYDROCHLORIDE
     Indication: SCHIZOAFFECTIVE DISORDER
     Dosage: 3 DF, QD
     Route: 048
     Dates: start: 20180327, end: 20180509
  4. RESILIENT [Concomitant]
     Dosage: 124.5 MG, QD
     Route: 065
  5. LANSOPRAZOLE. [Concomitant]
     Active Substance: LANSOPRAZOLE
     Dosage: UNK
     Dates: start: 20180415, end: 20180509
  6. MOGADON [Concomitant]
     Active Substance: NITRAZEPAM
     Dosage: 2 DF, QD
     Route: 065

REACTIONS (3)
  - Aggression [Unknown]
  - Tremor [Unknown]
  - Pyramidal tract syndrome [Unknown]

NARRATIVE: CASE EVENT DATE: 20180424
